FAERS Safety Report 4321907-X (Version None)
Quarter: 2004Q1

REPORT INFORMATION
  Report Type: 
  Country: None (occurrence: None)
  Receive Date: 20040318
  Receipt Date: 20040303
  Transmission Date: 20041129
  Serious: Yes (Other)
  Sender: FDA-Public Use
  Company Number: DE9152122AUG2002

PATIENT
  Age: 9 Year
  Sex: Male

DRUGS (4)
  1. REFACTO [Suspect]
     Indication: FACTOR VIII DEFICIENCY
     Dosage: SEE IMAGE
     Route: 042
     Dates: start: 20000201, end: 20000801
  2. REFACTO [Suspect]
     Indication: FACTOR VIII DEFICIENCY
     Dosage: SEE IMAGE
     Route: 042
     Dates: start: 20000801, end: 20001201
  3. REFACTO [Suspect]
     Indication: FACTOR VIII DEFICIENCY
     Dosage: SEE IMAGE
     Route: 042
     Dates: start: 19990801
  4. REFACTO [Suspect]
     Indication: FACTOR VIII DEFICIENCY
     Dosage: SEE IMAGE
     Route: 042
     Dates: start: 20010101

REACTIONS (7)
  - ANTIPHOSPHOLIPID ANTIBODIES [None]
  - DIZZINESS [None]
  - HAEMORRHAGE [None]
  - LYMPHADENOPATHY [None]
  - OROPHARYNGEAL SWELLING [None]
  - SYNCOPE [None]
  - TONSILLITIS [None]
